FAERS Safety Report 7422694-9 (Version None)
Quarter: 2011Q2

REPORT INFORMATION
  Report Type: 
  Country: None (occurrence: None)
  Receive Date: 20110419
  Receipt Date: 20110414
  Transmission Date: 20111010
  Serious: No
  Sender: FDA-Public Use
  Company Number: US-TEVA-277067USA

PATIENT
  Sex: Male
  Weight: 65.83 kg

DRUGS (1)
  1. ALBUTEROL SULFATE [Suspect]
     Route: 055
     Dates: start: 20110412, end: 20110412

REACTIONS (2)
  - DYSGEUSIA [None]
  - NAUSEA [None]
